FAERS Safety Report 6506332-5 (Version None)
Quarter: 2009Q4

REPORT INFORMATION
  Report Type: 
  Country: None (occurrence: None)
  Receive Date: 20091218
  Receipt Date: 20091209
  Transmission Date: 20100525
  Serious: Yes (Hospitalization)
  Sender: FDA-Public Use
  Company Number: DE-AMGEN-US380405

PATIENT
  Sex: Female
  Weight: 70.5 kg

DRUGS (9)
  1. ENBREL [Suspect]
     Indication: RHEUMATOID ARTHRITIS
     Route: 058
     Dates: start: 20090615, end: 20090902
  2. LANTAREL [Suspect]
     Indication: RHEUMATOID ARTHRITIS
     Route: 058
     Dates: start: 20030601, end: 20090906
  3. NITRENDIPINE [Concomitant]
     Route: 065
  4. FOLIC ACID [Concomitant]
     Route: 065
  5. RANTUDIL [Concomitant]
     Route: 065
  6. CALCIUM [Concomitant]
     Route: 065
  7. VITAMIN D3 [Concomitant]
     Route: 065
  8. METOPROLOL TARTRATE [Concomitant]
     Route: 065
  9. PREDNISOLONE [Concomitant]
     Indication: RHEUMATOID ARTHRITIS
     Route: 048
     Dates: start: 20030601

REACTIONS (3)
  - ABSCESS [None]
  - APPENDICITIS [None]
  - IMPAIRED HEALING [None]
